FAERS Safety Report 7513839-0 (Version None)
Quarter: 2011Q2

REPORT INFORMATION
  Report Type: 
  Country: None (occurrence: None)
  Receive Date: 20110531
  Receipt Date: 20110517
  Transmission Date: 20111010
  Serious: Yes (Hospitalization)
  Sender: FDA-Public Use
  Company Number: PHHY2011US42363

PATIENT
  Sex: Female

DRUGS (1)
  1. NEORAL [Suspect]
     Indication: RENAL TRANSPLANT
     Dosage: 100 MG IN MORNING, 75 MG IN EVENING
     Route: 048

REACTIONS (4)
  - CHEST PAIN [None]
  - KIDNEY INFECTION [None]
  - ARTERIAL RUPTURE [None]
  - INFLAMMATION [None]
